FAERS Safety Report 8033853-9 (Version None)
Quarter: 2012Q1

REPORT INFORMATION
  Report Type: 
  Country: None (occurrence: None)
  Receive Date: 20120110
  Receipt Date: 20111229
  Transmission Date: 20120608
  Serious: No
  Sender: FDA-Public Use
  Company Number: US-PFIZER INC-2012002179

PATIENT
  Age: 50 Year
  Sex: Female
  Weight: 64.41 kg

DRUGS (9)
  1. BENADRYL [Suspect]
     Indication: GLOSSODYNIA
  2. ARMODAFINIL [Suspect]
     Indication: DYSPNOEA
     Dosage: UNK
     Route: 065
  3. ARMODAFINIL [Suspect]
     Indication: GLOSSODYNIA
  4. HYDROGEN PEROXIDE SOLUTION [Suspect]
     Indication: DYSPNOEA
     Dosage: UNK
     Route: 065
  5. ARMODAFINIL [Suspect]
     Indication: DRY MOUTH
  6. HYDROGEN PEROXIDE SOLUTION [Suspect]
     Indication: GLOSSODYNIA
  7. HYDROGEN PEROXIDE SOLUTION [Suspect]
     Indication: DRY MOUTH
  8. BENADRYL [Suspect]
     Indication: DYSPNOEA
     Dosage: UNSPECIFIED, HALF OF THE PRODUCT AND THAN THE OTHER HALF ABOUT HALF AN HOUR LATER
     Route: 065
  9. BENADRYL [Suspect]
     Indication: DRY MOUTH
     Dosage: UNSPECIFIED, HALF OF THE PRODUCT AND THAN THE OTHER HALF ABOUT HALF AN HOUR LATER
     Route: 065

REACTIONS (2)
  - DRUG INEFFECTIVE FOR UNAPPROVED INDICATION [None]
  - WRONG TECHNIQUE IN DRUG USAGE PROCESS [None]
